FAERS Safety Report 10096219 (Version 5)
Quarter: 2014Q3

REPORT INFORMATION
  Report Type: Spontaneous
  Country: JP (occurrence: JP)
  Receive Date: 20140422
  Receipt Date: 20140912
  Transmission Date: 20150326
  Serious: Yes (Life-Threatening, Other)
  Sender: FDA-Public Use
  Company Number: JP-JNJFOC-20140410192

PATIENT
  Age: 59 Year
  Sex: Male
  Weight: 65 kg

DRUGS (12)
  1. HIRNAMIN (LEVOPROMAZINE MALEATE) [Suspect]
     Active Substance: LEVOMEPROMAZINE MALEATE
     Indication: SCHIZOPHRENIA
     Route: 048
     Dates: start: 20140409
  2. RISPERIDONE. [Suspect]
     Active Substance: RISPERIDONE
     Indication: SCHIZOPHRENIA
     Route: 048
     Dates: start: 20121017
  3. DEPAKENE [Concomitant]
     Active Substance: VALPROIC ACID
     Indication: SCHIZOPHRENIA
     Route: 048
     Dates: start: 20140328
  4. AKINETON [Concomitant]
     Active Substance: BIPERIDEN HYDROCHLORIDE
     Indication: PARKINSONISM
     Route: 048
     Dates: start: 20121211
  5. XEPLION [Suspect]
     Active Substance: PALIPERIDONE PALMITATE
     Indication: SCHIZOPHRENIA
     Route: 030
     Dates: start: 20140218, end: 20140218
  6. RISPERIDONE. [Suspect]
     Active Substance: RISPERIDONE
     Indication: SCHIZOPHRENIA
     Dosage: AS NECESSARY ABOUT ONCE WEEKLY
     Route: 048
     Dates: start: 20121211
  7. BENZALIN [Concomitant]
     Active Substance: NITRAZEPAM
     Indication: SCHIZOPHRENIA
     Route: 048
     Dates: start: 20121211
  8. XEPLION [Suspect]
     Active Substance: PALIPERIDONE PALMITATE
     Indication: SCHIZOPHRENIA
     Route: 030
     Dates: start: 20140318, end: 20140318
  9. DEPAKENE [Concomitant]
     Active Substance: VALPROIC ACID
     Indication: SCHIZOPHRENIA
     Route: 048
     Dates: start: 20140321, end: 20140327
  10. XEPLION [Suspect]
     Active Substance: PALIPERIDONE PALMITATE
     Indication: SCHIZOPHRENIA
     Route: 030
  11. HIRNAMIN (LEVOPROMAZINE MALEATE) [Suspect]
     Active Substance: LEVOMEPROMAZINE MALEATE
     Indication: SCHIZOPHRENIA
     Route: 048
     Dates: start: 20121211
  12. HIRNAMIN (LEVOPROMAZINE MALEATE) [Suspect]
     Active Substance: LEVOMEPROMAZINE MALEATE
     Indication: SCHIZOPHRENIA
     Route: 048
     Dates: start: 20130121, end: 20140408

REACTIONS (7)
  - Loss of consciousness [Recovered/Resolved]
  - Crush injury [Recovered/Resolved]
  - Psychotic disorder [Recovered/Resolved]
  - Sleep phase rhythm disturbance [Recovered/Resolved]
  - Fall [Recovered/Resolved]
  - Cerebral haemorrhage [Recovered/Resolved]
  - Extrapyramidal disorder [Recovered/Resolved]

NARRATIVE: CASE EVENT DATE: 20131113
